FAERS Safety Report 18230041 (Version 1)
Quarter: 2020Q3

REPORT INFORMATION
  Report Type: Spontaneous
  Country: IE (occurrence: IE)
  Receive Date: 20200904
  Receipt Date: 20200904
  Transmission Date: 20201103
  Serious: Yes (Other)
  Sender: FDA-Public Use
  Company Number: IE-009507513-2009IRL000490

PATIENT
  Age: 16 Year
  Sex: Male

DRUGS (2)
  1. ALCOHOL. [Suspect]
     Active Substance: ALCOHOL
     Dosage: (APPROXIMATELY 7 UNITS) (REPORTED AS ALCOHOL (GENERIC))
     Route: 048
  2. SINGULAIR [Suspect]
     Active Substance: MONTELUKAST SODIUM
     Indication: RHINITIS
     Dosage: 10 MILLIGRAM
     Route: 048
     Dates: start: 20200116, end: 20200722

REACTIONS (4)
  - Alcohol interaction [Recovered/Resolved]
  - Acute psychosis [Recovered/Resolved]
  - Suicidal ideation [Recovered/Resolved]
  - Aggression [Recovered/Resolved]

NARRATIVE: CASE EVENT DATE: 20200717
